FAERS Safety Report 5073284-7 (Version None)
Quarter: 2006Q3

REPORT INFORMATION
  Report Type: 
  Country: None (occurrence: None)
  Receive Date: 20060803
  Receipt Date: 20060719
  Transmission Date: 20061208
  Serious: Yes (Death)
  Sender: FDA-Public Use
  Company Number: ADE06012-L

PATIENT

DRUGS (4)
  1. CYCLOSPORINE [Suspect]
     Dosage: 4-6 MG/KG/DAY, ORAL,TAPERED TO 100-200NG/ML
     Route: 048
  2. ATG OR OKT3 ANTIBODIES [Concomitant]
  3. AZITHOPRINE [Concomitant]
  4. CORTICOSTERIODS [Concomitant]

REACTIONS (1)
  - MYOCARDIAL INFARCTION [None]
